FAERS Safety Report 21601986 (Version 2)
Quarter: 2022Q4

REPORT INFORMATION
  Report Type: Report from Study
  Country: KR (occurrence: KR)
  Receive Date: 20221116
  Receipt Date: 20221125
  Transmission Date: 20230113
  Serious: Yes (Hospitalization)
  Sender: FDA-Public Use
  Company Number: KR-GLAXOSMITHKLINE-KR2022GSK168599

PATIENT

DRUGS (5)
  1. BELIMUMAB [Suspect]
     Active Substance: BELIMUMAB
     Indication: Systemic lupus erythematosus
     Dosage: 448 UNK, FOR THE FIRST THREE INFUSIONS, EVERY 2 WEEKS. AFTER THAT, EVERY 4 WEEKS.
     Route: 042
     Dates: start: 20220929
  2. PREDNISOLONE [Concomitant]
     Active Substance: PREDNISOLONE
     Indication: Product used for unknown indication
     Dosage: 15 MG, QD
     Route: 048
     Dates: start: 20221027, end: 20221113
  3. PREDNISOLONE [Concomitant]
     Active Substance: PREDNISOLONE
     Dosage: 20 MG, QD
     Route: 048
     Dates: start: 20220901, end: 20221026
  4. MYCOPHENOLATE MOFETIL [Concomitant]
     Active Substance: MYCOPHENOLATE MOFETIL
     Indication: Product used for unknown indication
     Dosage: 1000 MG, QD
     Route: 048
     Dates: start: 20220901, end: 20221112
  5. MYCAL-D [Concomitant]
     Indication: Osteopenia
     Dosage: 1 DF, QD
     Route: 048
     Dates: start: 20220728, end: 20221112

REACTIONS (1)
  - Lupus enteritis [Recovered/Resolved]

NARRATIVE: CASE EVENT DATE: 20221112
